FAERS Safety Report 8249833-4 (Version None)
Quarter: 2012Q1

REPORT INFORMATION
  Report Type: 
  Country: None (occurrence: None)
  Receive Date: 20120316
  Receipt Date: 20100809
  Transmission Date: 20120608
  Serious: Yes (Other)
  Sender: FDA-Public Use
  Company Number: PHEH2008US04375

PATIENT
  Age: 84 Year
  Sex: Female
  Weight: 59.9 kg

DRUGS (11)
  1. ATENOLOL [Suspect]
     Dosage: 25 MG, UNK
     Dates: end: 20080403
  2. METOPROLOL TARTRATE [Concomitant]
  3. VIOXX [Concomitant]
  4. DIOVAN [Suspect]
     Indication: HYPERTENSION
     Dosage: 160 MG, BID 320 MG, QD, ORAL 80 MG, BID
     Route: 048
     Dates: start: 20080403
  5. DIOVAN [Suspect]
     Indication: HYPERTENSION
     Dosage: 160 MG, BID 320 MG, QD, ORAL 80 MG, BID
     Route: 048
     Dates: end: 20080403
  6. VASOTEC [Suspect]
     Dosage: 20 UNK, BID
  7. TEKTURNA [Suspect]
     Indication: HYPERTENSION
     Dosage: 150 MG, BID 300 MG, QD, ORAL
     Route: 048
     Dates: start: 20080403
  8. TEKTURNA [Suspect]
     Indication: HYPERTENSION
     Dosage: 150 MG, BID 300 MG, QD, ORAL
     Route: 048
     Dates: start: 20080430
  9. LASIX [Suspect]
     Dosage: 20 MG, QD
  10. HYDROCHLOROTHIAZIDE [Concomitant]
  11. BYSTOLIC [Suspect]
     Dosage: 10 MG, BID, ORAL
     Route: 048
     Dates: start: 20080403

REACTIONS (6)
  - URINE OUTPUT INCREASED [None]
  - FLATULENCE [None]
  - ALOPECIA [None]
  - OEDEMA PERIPHERAL [None]
  - BLOOD PRESSURE INADEQUATELY CONTROLLED [None]
  - POLLAKIURIA [None]
